FAERS Safety Report 9201138 (Version 9)
Quarter: 2015Q1

REPORT INFORMATION
  Report Type: Report from Study
  Country: CA (occurrence: CA)
  Receive Date: 20130401
  Receipt Date: 20150309
  Transmission Date: 20150721
  Serious: Yes (Death, Hospitalization, Other)
  Sender: FDA-Public Use
  Company Number: PHHY2013CA028453

PATIENT
  Age: 79 Year
  Sex: Female

DRUGS (1)
  1. SANDOSTATIN LAR DEPOT [Suspect]
     Active Substance: OCTREOTIDE ACETATE
     Indication: GASTROINTESTINAL HAEMORRHAGE
     Dosage: 20 MG, EVERY 4 WEEKS
     Route: 030
     Dates: start: 20100319, end: 20140205

REACTIONS (9)
  - Loss of consciousness [Unknown]
  - Death [Fatal]
  - Anaemia [Unknown]
  - Abdominal distension [Recovered/Resolved]
  - Abdominal pain [Recovered/Resolved]
  - Hip fracture [Unknown]
  - Haematochezia [Unknown]
  - Pulmonary oedema [Recovered/Resolved]
  - Product use issue [Unknown]

NARRATIVE: CASE EVENT DATE: 20100319
